FAERS Safety Report 19142383 (Version 2)
Quarter: 2021Q3

REPORT INFORMATION
  Report Type: Spontaneous
  Country: PT (occurrence: PT)
  Receive Date: 20210415
  Receipt Date: 20210715
  Transmission Date: 20211014
  Serious: Yes (Death, Hospitalization)
  Sender: FDA-Public Use
  Company Number: PT-TEVA-2021-PT-1900741

PATIENT
  Age: 54 Year
  Sex: Male

DRUGS (2)
  1. CISPLATIN. [Suspect]
     Active Substance: CISPLATIN
     Indication: ANAPLASTIC THYROID CANCER
     Route: 065
  2. DOXORUBICIN HYDROCHLORIDE SOLUTION FOR INJECTION 2 MG/ML [Suspect]
     Active Substance: DOXORUBICIN HYDROCHLORIDE
     Indication: ANAPLASTIC THYROID CANCER
     Route: 065

REACTIONS (2)
  - Sepsis [Fatal]
  - Febrile neutropenia [Fatal]
